FAERS Safety Report 18781343 (Version 1)
Quarter: 2021Q1

REPORT INFORMATION
  Report Type: Spontaneous
  Country: DE (occurrence: DE)
  Receive Date: 20210125
  Receipt Date: 20210125
  Transmission Date: 20210419
  Serious: Yes (Other)
  Sender: FDA-Public Use
  Company Number: DE-PFIZER INC-2021028451

PATIENT
  Age: 68 Year
  Sex: Male

DRUGS (1)
  1. LYRICA [Suspect]
     Active Substance: PREGABALIN
     Dosage: 150 MG

REACTIONS (8)
  - Suspected counterfeit product [Unknown]
  - Headache [Unknown]
  - Arteriospasm coronary [Unknown]
  - Hyperventilation [Unknown]
  - Drug intolerance [Unknown]
  - Chest discomfort [Unknown]
  - Hyperhidrosis [Unknown]
  - Tremor [Unknown]
